FAERS Safety Report 17997658 (Version 3)
Quarter: 2020Q3

REPORT INFORMATION
  Report Type: Spontaneous
  Country: US (occurrence: US)
  Receive Date: 20200708
  Receipt Date: 20200804
  Transmission Date: 20201103
  Serious: No
  Sender: FDA-Public Use
  Company Number: US-PFIZER INC-2020247134

PATIENT
  Age: 55 Year
  Sex: Female

DRUGS (17)
  1. FASLODEX [Suspect]
     Active Substance: FULVESTRANT
     Indication: BREAST CANCER METASTATIC
     Dosage: 500 MILLIGRAM, QMO
     Route: 030
     Dates: start: 20200214
  2. COLECALCIFEROL [Concomitant]
     Active Substance: CHOLECALCIFEROL
     Dosage: TAKE 1,000 UNITS DAILY
     Route: 048
  3. DENOSUMAB [Concomitant]
     Active Substance: DENOSUMAB
     Dosage: INJECT 60 MG UNDER THE SKIN EVERY 6 MONTHS (SYRINGE)
     Route: 050
  4. BACLOFEN. [Concomitant]
     Active Substance: BACLOFEN
     Dosage: 20 MILLIGRAM, BID
     Route: 048
  5. LACTULOSE. [Concomitant]
     Active Substance: LACTULOSE
     Indication: CONSTIPATION
     Dosage: TAKE 45 ML (30 G TOTAL) DAILY AS NEEDED (SOLUTION 10 GRAM/15 ML)
     Route: 048
  6. MAGNESIUM CITRATE. [Concomitant]
     Active Substance: MAGNESIUM CITRATE
     Dosage: 3?6 CAPSULES DAILY (ALPHA PYLORIC ACID)
     Route: 048
  7. PALBOCICLIB [Concomitant]
     Active Substance: PALBOCICLIB
     Dosage: TAKE 1 CAPSULE (100 MG TOTAL) DAILY/ TAKE FOR 21 DAYS, THEN OFF FOR 7 DAYS
     Route: 048
  8. KRILL OIL [Concomitant]
     Active Substance: DIETARY SUPPLEMENT\KRILL OIL
     Dosage: TAKE 1 CAPSULE DAILY
     Route: 048
  9. MAGNESIUM CITRATE. [Concomitant]
     Active Substance: MAGNESIUM CITRATE
     Dosage: TAKE 296 ML AT BED TIME
     Route: 048
  10. ELIQUIS [Suspect]
     Active Substance: APIXABAN
     Indication: DEEP VEIN THROMBOSIS
     Dosage: 5 MILLIGRAM, DAILY
     Route: 048
     Dates: start: 20200305
  11. BISACODYL. [Concomitant]
     Active Substance: BISACODYL
     Dosage: INSERT 1 DOSE INTO THE RECTUM DAILY AS NEEDED OR  FLEETS ENEMA
     Route: 054
  12. GABAPENTIN. [Concomitant]
     Active Substance: GABAPENTIN
     Indication: NIGHT SWEATS
     Dosage: 3 THREE CAPSULES AT BEDTIME
     Route: 048
  13. VALPROIC ACID. [Concomitant]
     Active Substance: VALPROIC ACID
     Dosage: 250 MG, DAILY
     Route: 048
  14. BACLOFEN. [Concomitant]
     Active Substance: BACLOFEN
     Dosage: NOT SURE OF AMOUNT (SYRINGE 50 MCG/ML (1 ML) )
     Route: 037
  15. FLUOXETINE HYDROCHLORIDE. [Concomitant]
     Active Substance: FLUOXETINE HYDROCHLORIDE
     Dosage: TAKE 40 MG DAILY
     Route: 048
  16. MAGNESIUM CITRATE. [Concomitant]
     Active Substance: MAGNESIUM CITRATE
     Dosage: TAKE 1 TABLET DAILY
     Route: 048
  17. IBRANCE [Suspect]
     Active Substance: PALBOCICLIB
     Indication: BREAST CANCER METASTATIC
     Dosage: 100 MG, DAILY(THEN 7 DAYS OFF)
     Route: 048
     Dates: start: 202002

REACTIONS (1)
  - Rash [Unknown]
